FAERS Safety Report 6690869-2 (Version None)
Quarter: 2010Q2

REPORT INFORMATION
  Report Type: 
  Country: None (occurrence: None)
  Receive Date: 20100421
  Receipt Date: 20100407
  Transmission Date: 20101027
  Serious: Yes (Death)
  Sender: FDA-Public Use
  Company Number: US-MYLANLABS-2010S1005864

PATIENT
  Age: 61 Year
  Sex: Male

DRUGS (7)
  1. PACLITAXEL [Suspect]
     Indication: BLADDER CANCER
     Dosage: 200 MG/M2 ON DAY 1 OF EVERY 21 DAY CYCLE.
     Route: 065
  2. PACLITAXEL [Suspect]
     Indication: OFF LABEL USE
     Dosage: 200 MG/M2 ON DAY 1 OF EVERY 21 DAY CYCLE.
     Route: 065
  3. CARBOPLATIN [Suspect]
     Indication: BLADDER CANCER
     Dosage: AUC 5, DAY 1 OF EVERY 21 DAY CYCLE.
     Route: 065
  4. GEMCITABINE HCL [Suspect]
     Indication: BLADDER CANCER
     Dosage: 800 MG/M2 ON DAYS 1 AND 8 OF EVERY 21 DAY CYCLE.
     Route: 065
  5. TRASTUZUMAB [Suspect]
     Indication: BLADDER CANCER
     Dosage: 4 MG/KG LOADING DOSE
     Route: 065
  6. TRASTUZUMAB [Suspect]
     Dosage: 2 MG/KG ON DAYS 1, 8 AND 15 OF EVERY 21 DAY CYCLE
     Route: 065
  7. METHOTREXATE [Suspect]
     Indication: METASTASES TO MENINGES
     Route: 037

REACTIONS (2)
  - METASTASES TO MENINGES [None]
  - UROSEPSIS [None]
